FAERS Safety Report 14906934 (Version 1)
Quarter: 2018Q2

REPORT INFORMATION
  Report Type: Spontaneous
  Country: IN (occurrence: IN)
  Receive Date: 20180517
  Receipt Date: 20180517
  Transmission Date: 20180711
  Serious: Yes (Death, Other)
  Sender: FDA-Public Use
  Company Number: IN-RICON PHARMA, LLC-RIC201805-000442

PATIENT
  Sex: Female

DRUGS (3)
  1. MAGNESIUM HYDROXIDE. [Concomitant]
     Active Substance: MAGNESIUM HYDROXIDE
     Indication: HYPERPHOSPHATAEMIA
  2. BETAMETHASONE. [Suspect]
     Active Substance: BETAMETHASONE
  3. ALUMINIUM HYDROXIDE [Concomitant]
     Active Substance: ALUMINUM HYDROXIDE
     Indication: HYPERPHOSPHATAEMIA

REACTIONS (2)
  - Foetal exposure during pregnancy [Unknown]
  - Tumour lysis syndrome [Fatal]
